FAERS Safety Report 16682048 (Version 2)
Quarter: 2019Q3

REPORT INFORMATION
  Report Type: Spontaneous
  Country: ES (occurrence: ES)
  Receive Date: 20190808
  Receipt Date: 20190822
  Transmission Date: 20191004
  Serious: Yes (Other)
  Sender: FDA-Public Use
  Company Number: ES-PFIZER INC-2019331952

PATIENT
  Age: 61 Year
  Sex: Female

DRUGS (5)
  1. TRANKIMAZIN [Concomitant]
     Active Substance: ALPRAZOLAM
     Indication: ANXIETY
     Dosage: UNK, AS NEEDED (ON DEMAND)
     Route: 048
  2. BETMIGA [Suspect]
     Active Substance: MIRABEGRON
     Indication: URGE INCONTINENCE
     Dosage: 50 MG, 1X/DAY
     Route: 048
     Dates: start: 20190611, end: 20190627
  3. SIMVASTATIN. [Concomitant]
     Active Substance: SIMVASTATIN
     Indication: BLOOD CHOLESTEROL ABNORMAL
     Dosage: UNK, 1X/DAY
     Route: 048
  4. ORFIDAL [Concomitant]
     Active Substance: LORAZEPAM
     Indication: SLEEP DISORDER
     Dosage: UNK, 1X/DAY
     Route: 048
  5. DETRUSITOL [Suspect]
     Active Substance: TOLTERODINE TARTRATE
     Indication: URGE INCONTINENCE
     Dosage: 4 MG, UNK
     Route: 048
     Dates: start: 20190628

REACTIONS (10)
  - Pain of skin [Recovered/Resolved]
  - Pain [Recovered/Resolved]
  - Urticaria [Recovered/Resolved]
  - Throat irritation [Recovered/Resolved]
  - Lacrimation increased [Recovered/Resolved]
  - Secretion discharge [Recovered/Resolved]
  - Eye swelling [Recovered/Resolved]
  - Excessive granulation tissue [Recovered/Resolved]
  - Facial pain [Recovered/Resolved]
  - Swelling face [Recovered/Resolved]

NARRATIVE: CASE EVENT DATE: 20190621
